FAERS Safety Report 9386762 (Version 3)
Quarter: 2013Q3

REPORT INFORMATION
  Report Type: Spontaneous
  Country: US (occurrence: US)
  Receive Date: 20130708
  Receipt Date: 20130905
  Transmission Date: 20140515
  Serious: Yes (Other)
  Sender: FDA-Public Use
  Company Number: US-PFIZER INC-2013200270

PATIENT
  Age: 60 Year
  Sex: Female
  Weight: 95.24 kg

DRUGS (2)
  1. LYRICA [Suspect]
     Indication: DIABETIC NEUROPATHY
     Dosage: 150 MG, 3X/DAY
  2. LYRICA [Suspect]
     Indication: FIBROMYALGIA

REACTIONS (4)
  - Abasia [Unknown]
  - Pain in extremity [Unknown]
  - Crying [Unknown]
  - Pain [Unknown]
